FAERS Safety Report 12610218 (Version 1)
Quarter: 2016Q3

REPORT INFORMATION
  Report Type: Spontaneous
  Country: US (occurrence: None)
  Receive Date: 20160729
  Receipt Date: 20160729
  Transmission Date: 20161109
  Serious: No
  Sender: FDA-Public Use
  Company Number: None

PATIENT
  Age: 43 Year
  Sex: Male
  Weight: 86.18 kg

DRUGS (1)
  1. CHOLESTYRAMINE ORAL USP, 4 G [Suspect]
     Active Substance: CHOLESTYRAMINE
     Indication: DIARRHOEA
     Dosage: 60 PACKET  TWICE A DAY TAKEN BY MOUTH
     Route: 048
     Dates: start: 20160726, end: 20160728

REACTIONS (2)
  - Decreased appetite [None]
  - Abdominal pain upper [None]

NARRATIVE: CASE EVENT DATE: 20160728
